FAERS Safety Report 7482291-6 (Version None)
Quarter: 2011Q2

REPORT INFORMATION
  Report Type: 
  Country: None (occurrence: None)
  Receive Date: 20110516
  Receipt Date: 20110511
  Transmission Date: 20111010
  Serious: Yes (Other)
  Sender: FDA-Public Use
  Company Number: US-PFIZER INC-2004063320

PATIENT
  Sex: Male

DRUGS (6)
  1. NEURONTIN [Suspect]
  2. NEURONTIN [Suspect]
     Indication: BACK PAIN
     Dosage: 300 MG, UNK
     Dates: start: 20010917
  3. NEURONTIN [Suspect]
     Indication: PAIN IN EXTREMITY
  4. NEURONTIN [Suspect]
     Dosage: 600 MG, UNK
     Dates: start: 20011009, end: 20021227
  5. NEURONTIN [Suspect]
     Indication: RESTLESS LEGS SYNDROME
  6. NEURONTIN [Suspect]

REACTIONS (4)
  - DRUG INEFFECTIVE FOR UNAPPROVED INDICATION [None]
  - THINKING ABNORMAL [None]
  - DEPRESSION [None]
  - SUICIDAL IDEATION [None]
